FAERS Safety Report 16114936 (Version 1)
Quarter: 2019Q1

REPORT INFORMATION
  Report Type: Spontaneous
  Country: US (occurrence: US)
  Receive Date: 20190325
  Receipt Date: 20190325
  Transmission Date: 20190418
  Serious: Yes (Hospitalization)
  Sender: FDA-Public Use
  Company Number: US-VERTEX PHARMACEUTICALS-2019-002429

PATIENT
  Age: 18 Year
  Sex: Female

DRUGS (21)
  1. IPRATROPIUM/ALBUTEROL [Concomitant]
     Active Substance: ALBUTEROL\IPRATROPIUM
  2. RANITIDINE. [Concomitant]
     Active Substance: RANITIDINE
  3. ONDANSETRON [Concomitant]
     Active Substance: ONDANSETRON
  4. ALENDRONATE [Concomitant]
     Active Substance: ALENDRONATE SODIUM
  5. DULERA [Concomitant]
     Active Substance: FORMOTEROL FUMARATE DIHYDRATE\MOMETASONE FUROATE
  6. PREDNISONE. [Concomitant]
     Active Substance: PREDNISONE
  7. LIDO/PRILOCAINE [Concomitant]
  8. CREON [Concomitant]
     Active Substance: PANCRELIPASE AMYLASE\PANCRELIPASE LIPASE\PANCRELIPASE PROTEASE
  9. DEKA [Concomitant]
  10. SMZ-TMP [Concomitant]
     Active Substance: SULFAMETHOXAZOLE\TRIMETHOPRIM
  11. HUMALOG [Concomitant]
     Active Substance: INSULIN LISPRO
  12. FEROSUL [Concomitant]
  13. HYPERSAL [Concomitant]
  14. AZITHROMYCIN ANHYDROUS. [Concomitant]
     Active Substance: AZITHROMYCIN ANHYDROUS
  15. CALCITRATE [Concomitant]
     Active Substance: CALCIUM CITRATE
  16. SYMDEKO [Suspect]
     Active Substance: IVACAFTOR\TEZACAFTOR
     Indication: CYSTIC FIBROSIS
     Dosage: 100MG TEZACAFTOR/150MG IVACAFTOR AM; 150MG IVACAFTOR PM
     Route: 048
     Dates: start: 20180712
  17. LANTUS [Concomitant]
     Active Substance: INSULIN GLARGINE
  18. MINOCYCLINE [Concomitant]
     Active Substance: MINOCYCLINE\MINOCYCLINE HYDROCHLORIDE
  19. PULMOZYME [Concomitant]
     Active Substance: DORNASE ALFA
  20. CALCITRIOL. [Concomitant]
     Active Substance: CALCITRIOL
  21. LINEZOLID. [Concomitant]
     Active Substance: LINEZOLID

REACTIONS (3)
  - Nasopharyngitis [Not Recovered/Not Resolved]
  - Pulmonary function test decreased [Not Recovered/Not Resolved]
  - Cystic fibrosis respiratory infection suppression [Not Recovered/Not Resolved]

NARRATIVE: CASE EVENT DATE: 20190308
